FAERS Safety Report 4888313-0 (Version None)
Quarter: 2006Q1

REPORT INFORMATION
  Report Type: 
  Country: None (occurrence: None)
  Receive Date: 20060123
  Receipt Date: 20051209
  Transmission Date: 20060701
  Serious: Yes (Hospitalization)
  Sender: FDA-Public Use
  Company Number: FR-LMS-050160

PATIENT
  Age: 64 Year
  Sex: Female

DRUGS (10)
  1. NABUMETONE [Suspect]
     Indication: PERIARTHRITIS
     Dosage: 1G PER DAY
     Route: 048
     Dates: start: 20051104, end: 20051118
  2. PARACETAMOL [Concomitant]
     Route: 048
  3. DIOSMIN [Concomitant]
     Route: 048
  4. DELURSAN [Concomitant]
     Route: 048
  5. CIPROFIBRATE [Concomitant]
     Route: 048
  6. ACTONEL [Concomitant]
  7. CALCIUM GLUCONATE [Concomitant]
  8. NEXIUM [Concomitant]
  9. DOMPERIDONE [Concomitant]
  10. GELOX [Concomitant]

REACTIONS (7)
  - ANOREXIA [None]
  - CHROMATURIA [None]
  - CYTOLYTIC HEPATITIS [None]
  - FAECES DISCOLOURED [None]
  - HEPATITIS [None]
  - HYPERBILIRUBINAEMIA [None]
  - WEIGHT DECREASED [None]
